FAERS Safety Report 6400206-6 (Version None)
Quarter: 2009Q4

REPORT INFORMATION
  Report Type: 
  Country: None (occurrence: None)
  Receive Date: 20091014
  Receipt Date: 20091006
  Transmission Date: 20100525
  Serious: Yes (Hospitalization)
  Sender: FDA-Public Use
  Company Number: GB-JNJFOC-20091001930

PATIENT
  Age: 46 Year
  Sex: Female
  Weight: 58.5 kg

DRUGS (3)
  1. NORESTHINTERONE [Suspect]
     Indication: MENORRHAGIA
     Route: 048
     Dates: start: 20090803, end: 20090907
  2. ATRIPLA [Suspect]
     Indication: HIV TEST POSITIVE
  3. TRANEXAMIC ACID [Suspect]
     Indication: MENORRHAGIA
     Dates: start: 20090803

REACTIONS (5)
  - BLOOD ALKALINE PHOSPHATASE INCREASED [None]
  - COAGULOPATHY [None]
  - GAMMA-GLUTAMYLTRANSFERASE INCREASED [None]
  - OFF LABEL USE [None]
  - TRANSAMINASES INCREASED [None]
